FAERS Safety Report 8381324-2 (Version None)
Quarter: 2012Q2

REPORT INFORMATION
  Report Type: 
  Country: None (occurrence: None)
  Receive Date: 20120523
  Receipt Date: 20120515
  Transmission Date: 20120825
  Serious: Yes (Hospitalization, Other)
  Sender: FDA-Public Use
  Company Number: US-PFIZER INC-2012098498

PATIENT
  Sex: Female
  Weight: 59.9 kg

DRUGS (24)
  1. SEROQUEL [Concomitant]
     Indication: BIPOLAR DISORDER
     Dosage: UNK
  2. FISH OIL [Concomitant]
     Dosage: 1000 MG, 2X/DAY
     Route: 048
  3. ADVAIR DISKUS 100/50 [Concomitant]
     Dosage: 250-50MCG/DOSE MISC 1 INHALATION TWO TIMES DAILY
     Dates: start: 20091023
  4. CRANBERRY [Concomitant]
     Dosage: 475 MG, 4X/DAY
     Route: 048
  5. TORADOL [Concomitant]
     Dosage: 10 MG, 2X/DAY
     Route: 048
  6. NITROFURANTOIN [Concomitant]
     Dosage: 100 MG, EVERY NIGHT
     Route: 048
     Dates: start: 20110317
  7. DEPO-PROVERA [Concomitant]
     Dosage: 150 MG/ML, EVERY 11-13WKS
     Route: 030
     Dates: start: 20070101
  8. ACIDOPHILUS [Concomitant]
     Dosage: UNK
     Route: 048
  9. KLONOPIN [Concomitant]
     Dosage: 1 MG, 1PRN
     Route: 048
  10. ZOCOR [Concomitant]
     Dosage: 10 MG, AT BEDTIME
     Route: 048
  11. CALCIUM WITH VITAMIN D [Concomitant]
     Dosage: 600 MG, 2X/DAY
     Route: 048
  12. SOMA [Concomitant]
     Dosage: 350 MG, 3X/DAY
     Route: 048
     Dates: start: 20111013
  13. FLEXERIL [Concomitant]
     Dosage: 100 MG, 3X/DAY
     Route: 048
  14. NEURONTIN [Suspect]
     Indication: NEURALGIA
     Dosage: 400 MG, 2X/DAY
     Route: 048
     Dates: start: 20111201
  15. PRILOSEC [Concomitant]
     Dosage: 10 MG, 1X/DAY
     Route: 048
  16. SEROQUEL [Concomitant]
     Dosage: 200 MG, 3X/DAY
     Route: 048
  17. ALBUTEROL [Concomitant]
     Dosage: 2 PRN
     Dates: start: 20040930
  18. NAMENDA [Concomitant]
     Dosage: 10 MG/5ML, TWO TIMES DAILY
     Route: 048
     Dates: start: 20091105
  19. PROZAC [Concomitant]
     Indication: BIPOLAR DISORDER
     Dosage: 60 MG, 1X/DAY
  20. MULTI-VITAMINS [Concomitant]
     Dosage: UNK
     Route: 048
  21. EXELON [Concomitant]
     Dosage: 4.6 MG/24HR
     Route: 062
  22. RITALIN [Concomitant]
     Dosage: 20 MG, 1 QAM
     Route: 048
     Dates: start: 20101011
  23. VOLTAREN [Concomitant]
     Dosage: 1% GEL TRANS FOUR TIMES DAILY, AS NEEDED
     Route: 062
  24. COGENTIN [Concomitant]
     Dosage: 1 MG, 2X/DAY
     Route: 048

REACTIONS (12)
  - DELUSIONAL PERCEPTION [None]
  - HEADACHE [None]
  - WEIGHT DECREASED [None]
  - INSOMNIA [None]
  - CONTUSION [None]
  - PSYCHOTIC DISORDER [None]
  - CONSTIPATION [None]
  - MIGRAINE [None]
  - VOMITING [None]
  - NECK PAIN [None]
  - MEMORY IMPAIRMENT [None]
  - DYSPNOEA [None]
